FAERS Safety Report 10441553 (Version 1)
Quarter: 2014Q3

REPORT INFORMATION
  Report Type: Spontaneous
  Country: US (occurrence: None)
  Receive Date: 20140905
  Receipt Date: 20140905
  Transmission Date: 20150326
  Serious: Yes (Death, Hospitalization)
  Sender: FDA-Public Use
  Company Number: QSC-2014-0547

PATIENT
  Age: 30 Year
  Sex: Female
  Weight: 47.2 kg

DRUGS (2)
  1. PROCRIT [Concomitant]
     Active Substance: ERYTHROPOIETIN
  2. H.P. ACTHAR [Suspect]
     Active Substance: CORTICOTROPIN
     Indication: LUPUS NEPHRITIS
     Dosage: 80 UNITS
     Route: 058
     Dates: start: 20140425

REACTIONS (11)
  - Diet refusal [None]
  - Renal failure acute [None]
  - Hypocalcaemia [None]
  - Anaemia [None]
  - Hyperkalaemia [None]
  - Acidosis [None]
  - Proteinuria [None]
  - Electrolyte imbalance [None]
  - Azotaemia [None]
  - Convulsion [None]
  - Lethargy [None]

NARRATIVE: CASE EVENT DATE: 20140719
